FAERS Safety Report 4322439-5 (Version None)
Quarter: 2004Q1

REPORT INFORMATION
  Report Type: 
  Country: None (occurrence: None)
  Receive Date: 20040319
  Receipt Date: 20040308
  Transmission Date: 20041129
  Serious: Yes (Disabling)
  Sender: FDA-Public Use
  Company Number: US069191

PATIENT
  Age: 56 Year
  Sex: Female
  Weight: 70 kg

DRUGS (4)
  1. ENBREL [Suspect]
     Indication: RHEUMATOID ARTHRITIS
     Dosage: 25 MG, 2 IN 1 WEEKS, SC
     Route: 058
     Dates: start: 20020914
  2. METHOTREXATE [Concomitant]
  3. FOLIC ACID [Concomitant]
  4. NSAIDS [Concomitant]

REACTIONS (4)
  - ARTHRITIS [None]
  - ARTHROPATHY [None]
  - MUSCULOSKELETAL STIFFNESS [None]
  - PAIN [None]
